FAERS Safety Report 22117578 (Version 1)
Quarter: 2023Q1

REPORT INFORMATION
  Report Type: Spontaneous
  Country: CN (occurrence: CN)
  Receive Date: 20230321
  Receipt Date: 20230321
  Transmission Date: 20230417
  Serious: Yes (Other)
  Sender: FDA-Public Use
  Company Number: CN-BEH-2023156448

PATIENT
  Age: 50 Year
  Sex: Male
  Weight: 60 kg

DRUGS (5)
  1. ALBURX [Suspect]
     Active Substance: ALBUMIN HUMAN
     Indication: Hypoproteinaemia
     Dosage: 10 GRAM, TOT
     Route: 041
     Dates: start: 20230227, end: 20230227
  2. ISONIAZID [Concomitant]
     Active Substance: ISONIAZID
     Indication: Pulmonary tuberculosis
     Dosage: 0.3 GRAM, OD
     Route: 041
     Dates: start: 20230223, end: 20230309
  3. LEVOFLOXACIN [Concomitant]
     Active Substance: LEVOFLOXACIN
     Indication: Pulmonary tuberculosis
     Dosage: 0.5 GRAM, OD
     Dates: start: 20230223, end: 20230303
  4. SODIUM CHLORIDE [Concomitant]
     Active Substance: SODIUM CHLORIDE
     Indication: Pulmonary tuberculosis
     Dosage: 0.5 GRAM, OD
     Route: 041
     Dates: start: 20230223, end: 20230303
  5. AMIKACIN SULFATE [Concomitant]
     Active Substance: AMIKACIN SULFATE
     Indication: Pulmonary tuberculosis
     Dosage: 0.3 GRAM, OD
     Route: 041
     Dates: start: 20230223, end: 20230309

REACTIONS (5)
  - Drug hypersensitivity [Recovered/Resolved]
  - Erythema [Recovered/Resolved]
  - Pruritus [Recovered/Resolved]
  - Urticaria [Recovered/Resolved]
  - Dyspnoea [Recovered/Resolved]

NARRATIVE: CASE EVENT DATE: 20230227
